FAERS Safety Report 10444576 (Version 1)
Quarter: 2014Q3

REPORT INFORMATION
  Report Type: Spontaneous
  Country: US (occurrence: None)
  Receive Date: 20140909
  Receipt Date: 20140909
  Transmission Date: 20150326
  Serious: No
  Sender: FDA-Public Use
  Company Number: None

PATIENT
  Age: 49 Year
  Sex: Female
  Weight: 52.16 kg

DRUGS (1)
  1. OXYBUTYNIN [Suspect]
     Active Substance: OXYBUTYNIN
     Indication: BLADDER DISORDER
     Dosage: 1 PILL DAILY ONCE DAILY
     Dates: start: 20140728, end: 20140825

REACTIONS (2)
  - Feeling hot [None]
  - Hot flush [None]

NARRATIVE: CASE EVENT DATE: 20140822
